FAERS Safety Report 18312611 (Version 1)
Quarter: 2020Q3

REPORT INFORMATION
  Report Type: Spontaneous
  Country: US (occurrence: US)
  Receive Date: 20200925
  Receipt Date: 20200925
  Transmission Date: 20201103
  Serious: No
  Sender: FDA-Public Use
  Company Number: US-BAYER-2020-207619

PATIENT
  Sex: Female

DRUGS (1)
  1. MIRENA [Suspect]
     Active Substance: LEVONORGESTREL
     Indication: CONTRACEPTION
     Dosage: 20 ?G PER DAY CONTINUOUSLY
     Route: 015
     Dates: start: 20150917

REACTIONS (3)
  - Amenorrhoea [Not Recovered/Not Resolved]
  - Vaginal haemorrhage [Recovered/Resolved]
  - Product prescribing issue [None]

NARRATIVE: CASE EVENT DATE: 201510
